FAERS Safety Report 19631805 (Version 1)
Quarter: 2021Q3

REPORT INFORMATION
  Report Type: Spontaneous
  Country: US (occurrence: US)
  Receive Date: 20210728
  Receipt Date: 20210728
  Transmission Date: 20211014
  Serious: No
  Sender: FDA-Public Use
  Company Number: US-ROCHE-2591677

PATIENT
  Age: 43 Year
  Sex: Female

DRUGS (2)
  1. XELODA [Suspect]
     Active Substance: CAPECITABINE
     Indication: COLON CANCER
     Dosage: ONGOING STATUS: NO
     Route: 048
  2. ELOXATIN [Concomitant]
     Active Substance: OXALIPLATIN

REACTIONS (4)
  - Fatigue [Unknown]
  - Nausea [Recovered/Resolved]
  - Abdominal distension [Unknown]
  - Constipation [Unknown]

NARRATIVE: CASE EVENT DATE: 20200406
